FAERS Safety Report 4550579-4 (Version None)
Quarter: 2004Q4

REPORT INFORMATION
  Report Type: 
  Country: None (occurrence: None)
  Receive Date: 20041227
  Receipt Date: 20041117
  Transmission Date: 20050328
  Serious: No
  Sender: FDA-Public Use
  Company Number: 04P-163-0281047-00

PATIENT
  Age: 68 Year
  Sex: Female
  Weight: 97.0698 kg

DRUGS (14)
  1. HUMIRA [Suspect]
     Indication: RHEUMATOID ARTHRITIS
     Dosage: 40 MG, 1 IN 2 WK, SUBCUTANEOUS
     Route: 058
     Dates: start: 20030901, end: 20040310
  2. HUMIRA [Suspect]
     Indication: RHEUMATOID ARTHRITIS
     Dosage: 40 MG, 1 IN 2 WK, SUBCUTANEOUS
     Route: 058
     Dates: start: 20040904
  3. METHOTREXATE SODIUM [Concomitant]
  4. CELECOXIB [Concomitant]
  5. ESOMEPRAZOLE [Concomitant]
  6. PREDNISONE [Concomitant]
  7. HYDROCHLOROTHIAZIDE [Concomitant]
  8. ATORVASTATIN [Concomitant]
  9. WARFARIN SODIUM [Concomitant]
  10. PROPACET 100 [Concomitant]
  11. ASCORBIC ACID [Concomitant]
  12. TOCOPHEROL CONCENTRATE CAP [Concomitant]
  13. VITAMIN AND MINERAL PRENATAL SUPPLEMENT W/ FOLIC ACID CAP [Concomitant]
  14. ESTRADIOL [Concomitant]

REACTIONS (2)
  - ALOPECIA [None]
  - MEMORY IMPAIRMENT [None]
